FAERS Safety Report 5298958-4 (Version None)
Quarter: 2007Q2

REPORT INFORMATION
  Report Type: 
  Country: None (occurrence: None)
  Receive Date: 20070412
  Receipt Date: 20070412
  Transmission Date: 20071010
  Serious: Yes (Other)
  Sender: FDA-Public Use
  Company Number: None

PATIENT
  Age: 53 Year
  Sex: Female
  Weight: 49.8957 kg

DRUGS (2)
  1. PROTOPIC [Suspect]
     Indication: PRURITUS
     Dosage: THIN FILM TO 2 TIMES PER DAY TOP
     Route: 061
     Dates: start: 20070403, end: 20070403
  2. PROTOPIC [Suspect]
     Indication: SWELLING
     Dosage: THIN FILM TO 2 TIMES PER DAY TOP
     Route: 061
     Dates: start: 20070403, end: 20070403

REACTIONS (4)
  - BURNING SENSATION [None]
  - PAIN [None]
  - PRURITUS [None]
  - URTICARIA [None]
